FAERS Safety Report 6159393-X (Version None)
Quarter: 2009Q2

REPORT INFORMATION
  Report Type: 
  Country: None (occurrence: None)
  Receive Date: 20090417
  Receipt Date: 20090409
  Transmission Date: 20091009
  Serious: Yes (Hospitalization)
  Sender: FDA-Public Use
  Company Number: SZ-BAXTER-2009BH005888

PATIENT
  Age: 52 Year
  Sex: Male

DRUGS (10)
  1. ENDOXAN BAXTER [Suspect]
     Indication: RHEUMATOID VASCULITIS
     Route: 065
     Dates: start: 20090209, end: 20090209
  2. ENDOXAN BAXTER [Suspect]
     Indication: GLOMERULONEPHRITIS
     Route: 065
     Dates: start: 20090209, end: 20090209
  3. ENDOXAN BAXTER [Suspect]
     Indication: OFF LABEL USE
     Route: 065
     Dates: start: 20090209, end: 20090209
  4. ENDOXAN BAXTER [Suspect]
     Route: 065
     Dates: start: 20090108, end: 20090108
  5. ENDOXAN BAXTER [Suspect]
     Route: 065
     Dates: start: 20090108, end: 20090108
  6. ENDOXAN BAXTER [Suspect]
     Route: 065
     Dates: start: 20090108, end: 20090108
  7. ESOMEPRAZOLE MAGNESIUM [Suspect]
     Indication: RHEUMATOID VASCULITIS
     Route: 048
  8. ALDACTONE [Suspect]
     Indication: RHEUMATOID VASCULITIS
     Route: 048
  9. AMLODIPINE BESYLATE [Concomitant]
     Indication: DRUG USE FOR UNKNOWN INDICATION
     Route: 048
  10. SPIRICORT [Concomitant]
     Indication: DRUG USE FOR UNKNOWN INDICATION
     Route: 048

REACTIONS (7)
  - ASTHENIA [None]
  - BLOOD OSMOLARITY DECREASED [None]
  - CIRCULATORY COLLAPSE [None]
  - HYPONATRAEMIA [None]
  - INAPPROPRIATE ANTIDIURETIC HORMONE SECRETION [None]
  - NAUSEA [None]
  - VOMITING [None]
